FAERS Safety Report 19686394 (Version 6)
Quarter: 2022Q1

REPORT INFORMATION
  Report Type: Report from Study
  Country: US (occurrence: US)
  Receive Date: 20210811
  Receipt Date: 20220314
  Transmission Date: 20220423
  Serious: Yes (Hospitalization, Other)
  Sender: FDA-Public Use
  Company Number: US-SANOFI-00716198

PATIENT
  Age: 74 Year
  Sex: Male

DRUGS (4)
  1. DUPILUMAB [Suspect]
     Active Substance: DUPILUMAB
     Indication: Asthma
     Dosage: 300 MG, QOW
     Route: 058
     Dates: start: 20210527
  2. DUPILUMAB [Suspect]
     Active Substance: DUPILUMAB
     Dosage: 600 MG, 1X
     Route: 058
     Dates: start: 20210625, end: 20210625
  3. DUPILUMAB [Suspect]
     Active Substance: DUPILUMAB
     Dosage: 300 MG, QOW
     Route: 058
     Dates: start: 2021, end: 202108
  4. DUPILUMAB [Suspect]
     Active Substance: DUPILUMAB
     Dosage: 300 MG, QOW
     Route: 058
     Dates: start: 2021

REACTIONS (15)
  - Hemiplegia [Unknown]
  - Fall [Unknown]
  - Headache [Unknown]
  - Arterial occlusive disease [Unknown]
  - Dehydration [Unknown]
  - Neck surgery [Unknown]
  - Spinal fusion surgery [Unknown]
  - Spondylitis [Unknown]
  - Gait disturbance [Unknown]
  - Weight increased [Unknown]
  - Pain [Unknown]
  - Blood glucose increased [Unknown]
  - Cough [Recovered/Resolved]
  - Electric shock sensation [Unknown]
  - Product use issue [Unknown]

NARRATIVE: CASE EVENT DATE: 20210101
